FAERS Safety Report 4945975-7 (Version None)
Quarter: 2006Q1

REPORT INFORMATION
  Report Type: 
  Country: None (occurrence: None)
  Receive Date: 20060316
  Receipt Date: 20051020
  Transmission Date: 20060701
  Serious: Yes (Hospitalization)
  Sender: FDA-Public Use
  Company Number: US-MERCK-0510USA08441

PATIENT
  Age: 62 Year
  Sex: Male
  Weight: 80 kg

DRUGS (7)
  1. VIOXX [Suspect]
     Indication: ARTHRITIS
     Route: 048
     Dates: start: 20010401, end: 20030301
  2. VIOXX [Suspect]
     Indication: NECK PAIN
     Route: 048
     Dates: start: 20010401, end: 20030301
  3. LODINE [Concomitant]
     Route: 065
     Dates: start: 20010101, end: 20030101
  4. ULTRAM [Concomitant]
     Route: 065
     Dates: start: 20001201, end: 20030201
  5. ZANTAC [Concomitant]
     Route: 065
  6. BEXTRA [Concomitant]
     Route: 065
     Dates: start: 20020601, end: 20030101
  7. ACETAMINOPHEN AND PROPOXYPHENE NAPSYLATE [Concomitant]
     Route: 065
     Dates: start: 20010101, end: 20020701

REACTIONS (20)
  - ACUTE MYOCARDIAL INFARCTION [None]
  - ANGINA PECTORIS [None]
  - ARTERIOSCLEROSIS [None]
  - CHEST DISCOMFORT [None]
  - DIZZINESS [None]
  - DYSLIPIDAEMIA [None]
  - GASTRIC ULCER [None]
  - GASTRITIS [None]
  - HEADACHE [None]
  - HELICOBACTER GASTRITIS [None]
  - HYPERTENSION [None]
  - HYPOTENSION [None]
  - ISCHAEMIC CARDIOMYOPATHY [None]
  - LABYRINTHITIS [None]
  - LEFT VENTRICULAR FAILURE [None]
  - METAPLASIA [None]
  - MITRAL VALVE INCOMPETENCE [None]
  - PEPTIC ULCER [None]
  - UPPER GASTROINTESTINAL HAEMORRHAGE [None]
  - WEIGHT DECREASED [None]
